FAERS Safety Report 15580591 (Version 5)
Quarter: 2019Q4

REPORT INFORMATION
  Report Type: Spontaneous
  Country: JP (occurrence: JP)
  Receive Date: 20181102
  Receipt Date: 20191024
  Transmission Date: 20200122
  Serious: Yes (Hospitalization)
  Sender: FDA-Public Use
  Company Number: JP-ASTRAZENECA-2018SF42030

PATIENT
  Age: 85 Year
  Sex: Female
  Weight: 53 kg

DRUGS (22)
  1. URSO [Concomitant]
     Active Substance: URSODIOL
     Route: 048
  2. MAGMITT [Concomitant]
     Active Substance: MAGNESIUM OXIDE
     Route: 048
  3. FERROUS SULFATE. [Concomitant]
     Active Substance: FERROUS SULFATE
     Route: 048
  4. LYRICA [Suspect]
     Active Substance: PREGABALIN
     Route: 048
     Dates: start: 20180214, end: 20180214
  5. DIMETICONE [Concomitant]
     Active Substance: DIMETHICONE
     Route: 048
  6. SUCRALFATE HYDRATE [Concomitant]
     Active Substance: SUCRALFATE
     Route: 048
  7. HYPOCA [Concomitant]
     Active Substance: BARNIDIPINE HYDROCHLORIDE
     Route: 048
  8. NEUROTROPIN [Concomitant]
     Active Substance: NEUROTROPIN
     Route: 048
  9. GASTER [Concomitant]
     Active Substance: FAMOTIDINE
     Route: 048
  10. ALPRAZOLAM. [Concomitant]
     Active Substance: ALPRAZOLAM
     Route: 048
  11. CARDENALIN [Concomitant]
     Active Substance: DOXAZOSIN MESYLATE
     Route: 048
  12. AZILVA [Concomitant]
     Active Substance: AZILSARTAN KAMEDOXOMIL
     Route: 048
  13. BUFFERIN [Suspect]
     Active Substance: ASPIRIN
     Route: 048
  14. EDOXABAN TOSILATE HYDRATE [Suspect]
     Active Substance: EDOXABAN TOSYLATE
     Route: 065
     Dates: start: 20170617
  15. NEXIUM [Suspect]
     Active Substance: ESOMEPRAZOLE MAGNESIUM
     Dosage: 20 MG EVERY DAY, AFTER BREAKFAST
     Route: 048
     Dates: start: 20180203, end: 20180217
  16. LIXIANA [Suspect]
     Active Substance: EDOXABAN TOSYLATE
     Route: 048
  17. PRIMPERAN [Concomitant]
     Active Substance: METOCLOPRAMIDE HYDROCHLORIDE
     Route: 048
  18. CIBENZOLINE SUCCINATE [Concomitant]
     Active Substance: CIFENLINE SUCCINATE
     Route: 048
  19. PERSANTIN [Concomitant]
     Active Substance: DIPYRIDAMOLE
     Route: 048
  20. CELIPROLOL HYDROCHLORIDE [Concomitant]
     Active Substance: CELIPROLOL HYDROCHLORIDE
     Route: 048
  21. DIAZEPAM. [Concomitant]
     Active Substance: DIAZEPAM
     Route: 048
  22. LIMAPROST ALFADEX [Concomitant]
     Active Substance: LIMAPROST
     Route: 048

REACTIONS (17)
  - Vomiting [Recovering/Resolving]
  - Abdominal pain upper [Recovering/Resolving]
  - Constipation [Recovering/Resolving]
  - Neuralgia [Recovering/Resolving]
  - Nausea [Recovering/Resolving]
  - Sinus arrest [Recovering/Resolving]
  - Fall [Recovering/Resolving]
  - Feeling abnormal [Unknown]
  - Atrial fibrillation [Unknown]
  - Swelling [Unknown]
  - Pneumonia aspiration [Recovering/Resolving]
  - Contusion [Recovering/Resolving]
  - Dizziness [Recovered/Resolved]
  - Abdominal pain [Unknown]
  - Subcutaneous haematoma [Recovering/Resolving]
  - Haemorrhage subcutaneous [Recovering/Resolving]
  - Cataract [Recovering/Resolving]

NARRATIVE: CASE EVENT DATE: 20171106
